FAERS Safety Report 6749852-0 (Version None)
Quarter: 2010Q2

REPORT INFORMATION
  Report Type: 
  Country: None (occurrence: None)
  Receive Date: 20100527
  Receipt Date: 20100527
  Transmission Date: 20101027
  Serious: Yes (Hospitalization)
  Sender: FDA-Public Use
  Company Number: None

PATIENT
  Age: 39 Year
  Sex: Female
  Weight: 54.4316 kg

DRUGS (1)
  1. DOXYCYCLINE [Suspect]
     Indication: INFECTION PROPHYLAXIS
     Dosage: 100MG 2 TIMES PER DAY PO
     Route: 048
     Dates: start: 20100422, end: 20100426

REACTIONS (7)
  - DYSPEPSIA [None]
  - DYSPNOEA [None]
  - EYE DISORDER [None]
  - FALL [None]
  - FATIGUE [None]
  - PARALYSIS [None]
  - TREMOR [None]
